FAERS Safety Report 7396591-1 (Version None)
Quarter: 2011Q2

REPORT INFORMATION
  Report Type: 
  Country: None (occurrence: None)
  Receive Date: 20110406
  Receipt Date: 20110324
  Transmission Date: 20111010
  Serious: Yes (Other)
  Sender: FDA-Public Use
  Company Number: PHHY2010TW39884

PATIENT
  Sex: Female

DRUGS (4)
  1. GLEEVEC [Concomitant]
     Indication: GASTROINTESTINAL STROMAL TUMOUR
     Dosage: 600 MG, UNK
     Route: 048
     Dates: start: 20031107
  2. GLEEVEC [Concomitant]
     Dosage: 400 MG, UNK
     Route: 048
  3. TASIGNA [Suspect]
     Dosage: 800 MG, UNK
     Route: 048
     Dates: end: 20101030
  4. TASIGNA [Suspect]
     Indication: GASTROINTESTINAL STROMAL TUMOUR
     Dosage: 400 MG, UNK
     Route: 048
     Dates: start: 20100101

REACTIONS (10)
  - RASH [None]
  - EYE PRURITUS [None]
  - DECREASED APPETITE [None]
  - RETINAL DISORDER [None]
  - ABDOMINAL DISTENSION [None]
  - EYE PAIN [None]
  - MUSCULOSKELETAL STIFFNESS [None]
  - RETINAL DETACHMENT [None]
  - ABDOMINAL PAIN [None]
  - PRURITUS [None]
